FAERS Safety Report 8476809-4 (Version None)
Quarter: 2012Q2

REPORT INFORMATION
  Report Type: 
  Country: None (occurrence: None)
  Receive Date: 20120629
  Receipt Date: 20120619
  Transmission Date: 20120825
  Serious: Yes (Other)
  Sender: FDA-Public Use
  Company Number: JP-BAYER-2011-042696

PATIENT
  Age: 7 Year
  Sex: Male
  Weight: 38.5 kg

DRUGS (31)
  1. TOCILIZUMAB [Suspect]
     Indication: JUVENILE ARTHRITIS
     Dosage: 270 MG ONE PER TWO WEEKS
     Route: 041
     Dates: start: 20101116, end: 20110111
  2. TOCILIZUMAB [Suspect]
     Dosage: 300 MG ONE PER TWO WEEKS
     Route: 041
     Dates: start: 20110207, end: 20110418
  3. PREDNISOLONE [Concomitant]
     Dosage: 25 MG, UNK
     Route: 048
     Dates: start: 20100901, end: 20100909
  4. PREDNISOLONE [Concomitant]
     Dosage: 15 MG, UNK
     Route: 048
     Dates: start: 20101112, end: 20101125
  5. PREDNISOLONE [Concomitant]
     Dosage: 5 MG, UNK
     Route: 048
     Dates: start: 20110107, end: 20110220
  6. ALFAROL [Concomitant]
     Dosage: 25 ?G, UNK
     Route: 048
  7. TOCILIZUMAB [Suspect]
     Dosage: 300 MG ONE PER THREE WEEKS
     Route: 041
     Dates: start: 20110207, end: 20110418
  8. PREDNISOLONE [Concomitant]
     Dosage: 4 MG, UNK
     Route: 048
     Dates: start: 20110221, end: 20110321
  9. PREDNISOLONE [Concomitant]
     Dosage: 1 MG, UNK
     Route: 048
     Dates: start: 20110404, end: 20110530
  10. PREDNISOLONE [Concomitant]
     Dosage: 30 MG, UNK
     Route: 048
     Dates: start: 20101015, end: 20101021
  11. AMOXICILLIN [Concomitant]
     Dosage: 1000 MG, UNK
     Route: 048
  12. LANSOPRAZOLE [Concomitant]
     Dosage: 15 MG, UNK
     Route: 048
     Dates: start: 20110530
  13. TOCILIZUMAB [Suspect]
     Dosage: 300 MG ONE PER TWO WEEKS
     Route: 041
     Dates: start: 20110207, end: 20110418
  14. TOCILIZUMAB [Suspect]
     Dosage: 300 MG ONE PER THREE WEEKS
     Route: 041
     Dates: start: 20110207, end: 20110418
  15. PREDNISOLONE [Concomitant]
     Indication: JUVENILE ARTHRITIS
     Dosage: 20 MG, UNK
     Dates: start: 20100818
  16. PREDNISOLONE [Concomitant]
     Dosage: 12.5 MG, UNK
     Route: 048
     Dates: start: 20100826, end: 20100901
  17. PREDNISOLONE [Concomitant]
     Dosage: 7.5 MG, UNK
     Route: 048
     Dates: start: 20101224, end: 20110106
  18. TOCILIZUMAB [Suspect]
     Dosage: 300 MG ONE PER FOUR WEEKS
     Route: 041
     Dates: start: 20110207
  19. PREDNISOLONE [Concomitant]
     Dosage: 40 MG, UNK
     Route: 048
     Dates: start: 20101001, end: 20101007
  20. PREDNISOLONE [Concomitant]
     Dosage: 50 MG, UNK
     Route: 048
     Dates: start: 20100910, end: 20100923
  21. PREDNISOLONE [Concomitant]
     Dosage: 12.5 MG, UNK
     Route: 048
     Dates: start: 20101126, end: 20101209
  22. PREDNISOLONE [Concomitant]
     Dosage: 10 MG, UNK
     Route: 048
     Dates: start: 20101210, end: 20101223
  23. PREDNISOLONE [Concomitant]
     Dosage: 2 MG, UNK
     Route: 048
     Dates: start: 20110404, end: 20110501
  24. PREDNISOLONE [Concomitant]
     Dosage: 45 MG, UNK
     Route: 048
     Dates: start: 20100924, end: 20100930
  25. PREDNISOLONE [Concomitant]
     Dosage: 35 MG, UNK
     Route: 048
     Dates: start: 20101008, end: 20101014
  26. PREDNISOLONE [Concomitant]
     Dosage: 20 MG, UNK
     Route: 048
     Dates: start: 20101029, end: 20101111
  27. NAPROXEN SODIUM [Suspect]
     Indication: JUVENILE ARTHRITIS
     Dosage: 400 MG, QD
     Route: 048
     Dates: start: 20100909
  28. RHEUMATREX [Suspect]
     Indication: JUVENILE ARTHRITIS
     Dosage: 10 MG 1 PER 1 WEEK
     Route: 048
     Dates: start: 20100905, end: 20110130
  29. PREDNISOLONE [Concomitant]
     Dosage: 15 MG, UNK
     Dates: start: 20100819, end: 20100825
  30. PREDNISOLONE [Concomitant]
     Dosage: 25 MG, UNK
     Route: 048
     Dates: start: 20101022, end: 20101028
  31. PREDNISOLONE [Concomitant]
     Dosage: 3 MG, UNK
     Route: 048
     Dates: start: 20110321, end: 20110403

REACTIONS (2)
  - LIVER DISORDER [None]
  - CONJUNCTIVITIS ALLERGIC [None]
